FAERS Safety Report 14235022 (Version 1)
Quarter: 2017Q4

REPORT INFORMATION
  Report Type: Spontaneous
  Country: US (occurrence: US)
  Receive Date: 20171129
  Receipt Date: 20171129
  Transmission Date: 20180321
  Serious: No
  Sender: FDA-Public Use
  Company Number: US-009507513-1711USA004984

PATIENT
  Age: 24 Year
  Sex: Female
  Weight: 83.9 kg

DRUGS (2)
  1. NEXPLANON [Suspect]
     Active Substance: ETONOGESTREL
     Indication: CONTRACEPTION
     Dosage: 1 ROD UP TO 3 YEARS
     Route: 059
     Dates: start: 20171016
  2. NUVARING [Suspect]
     Active Substance: ETHINYL ESTRADIOL\ETONOGESTREL
     Route: 067

REACTIONS (6)
  - Anxiety [Unknown]
  - Implant site pruritus [Unknown]
  - Chest pain [Unknown]
  - Product use issue [Unknown]
  - Implant site rash [Unknown]
  - Hypertension [Unknown]

NARRATIVE: CASE EVENT DATE: 2017
